FAERS Safety Report 7146713-2 (Version None)
Quarter: 2010Q4

REPORT INFORMATION
  Report Type: 
  Country: None (occurrence: None)
  Receive Date: 20101208
  Receipt Date: 20101129
  Transmission Date: 20110411
  Serious: Yes (Death, Other)
  Sender: FDA-Public Use
  Company Number: HR-MPIJNJ-2010-05973

PATIENT

DRUGS (2)
  1. VELCADE [Suspect]
     Indication: MULTIPLE MYELOMA
     Dosage: UNK
     Route: 042
  2. DEXAMETHASONE [Concomitant]
     Indication: MULTIPLE MYELOMA
     Dosage: UNK

REACTIONS (6)
  - AUTONOMIC NEUROPATHY [None]
  - LEUKAEMIA PLASMACYTIC [None]
  - MULTIPLE MYELOMA [None]
  - ORTHOSTATIC HYPOTENSION [None]
  - SYNCOPE [None]
  - URINARY RETENTION [None]
